FAERS Safety Report 9514004 (Version 1)
Quarter: 2013Q3

REPORT INFORMATION
  Report Type: Spontaneous
  Country: US (occurrence: US)
  Receive Date: 20130910
  Receipt Date: 20130910
  Transmission Date: 20140515
  Serious: Yes (Death)
  Sender: FDA-Public Use
  Company Number: US-MYLANLABS-2013S1019563

PATIENT
  Age: 55 Year
  Sex: Female

DRUGS (1)
  1. HYDROXYCHLOROQUINE [Suspect]
     Dosage: 400 MG/DAY
     Route: 065

REACTIONS (2)
  - Cardiomyopathy [Fatal]
  - Endocarditis [Fatal]
